FAERS Safety Report 5620018-0 (Version None)
Quarter: 2008Q1

REPORT INFORMATION
  Report Type: 
  Country: None (occurrence: None)
  Receive Date: 20080208
  Receipt Date: 20080104
  Transmission Date: 20080703
  Serious: No
  Sender: FDA-Public Use
  Company Number: US-ABBOTT-08P-163-0432550-00

PATIENT
  Sex: Male
  Weight: 89.892 kg

DRUGS (2)
  1. KALETRA [Suspect]
     Indication: HIV INFECTION
     Route: 048
     Dates: start: 20071101
  2. ABACAVIR W/LAMIVUDINE [Interacting]
     Indication: HIV INFECTION
     Dates: start: 20071201

REACTIONS (3)
  - DRUG INTERACTION [None]
  - DYSPNOEA [None]
  - PALPITATIONS [None]
